FAERS Safety Report 8967760 (Version 1)
Quarter: 2012Q4

REPORT INFORMATION
  Report Type: Spontaneous
  Country: US (occurrence: None)
  Receive Date: 20121213
  Receipt Date: 20121213
  Transmission Date: 20130627
  Serious: Yes (Life-Threatening, Hospitalization, Other)
  Sender: FDA-Public Use
  Company Number: None

PATIENT
  Age: 5 Year
  Sex: Male
  Weight: 15.88 kg

DRUGS (3)
  1. BOTOX [Suspect]
     Indication: SPASTICITY
     Dates: start: 20120524, end: 20120524
  2. MULTIVITAMIN [Concomitant]
  3. FLUORIDE [Concomitant]

REACTIONS (5)
  - Vomiting [None]
  - Swelling face [None]
  - Anaphylactic reaction [None]
  - Drug hypersensitivity [None]
  - Tongue disorder [None]
